FAERS Safety Report 9045390 (Version 1)
Quarter: 2013Q1

REPORT INFORMATION
  Report Type: Report from Study
  Country: US (occurrence: US)
  Receive Date: 20130131
  Receipt Date: 20130131
  Transmission Date: 20140127
  Serious: No
  Sender: FDA-Public Use
  Company Number: US-ABBOTT-12P-163-1003223-00

PATIENT
  Age: 54 Year
  Sex: Female

DRUGS (15)
  1. HUMIRA [Suspect]
     Indication: RHEUMATOID ARTHRITIS
     Route: 058
     Dates: start: 2009, end: 2010
  2. HUMIRA [Suspect]
     Route: 058
     Dates: start: 20120820
  3. DIOVAN [Concomitant]
     Indication: HYPERTENSION
     Dosage: 160 MG DAILY
  4. LOVAZA [Concomitant]
     Indication: BLOOD CHOLESTEROL
     Dosage: 1 GM DAILY
  5. HYDROCHLOROTHIAZIDE [Concomitant]
     Indication: FLUID RETENTION
     Dosage: 25 MG DAILY
  6. FOLIC ACID [Concomitant]
     Indication: RHEUMATOID ARTHRITIS
     Dosage: 1 MG DAILY
  7. METHOTREXATE [Concomitant]
     Indication: RHEUMATOID ARTHRITIS
     Dosage: 2.5 MG X 6 TABS WEEKLY
  8. ASPIRIN [Concomitant]
     Indication: PRODUCT USED FOR UNKNOWN INDICATION
     Dosage: 81 MG DAILY
  9. METROGEL [Concomitant]
     Indication: ROSACEA
     Dosage: APPLY TO FACE
  10. OCCUVITE VITAMIN [Concomitant]
     Indication: EYE DISORDER
     Dosage: 1 DAILY
  11. VITAMIN C [Concomitant]
     Indication: PRODUCT USED FOR UNKNOWN INDICATION
     Dosage: 1000 MG DAILY
  12. TRAMADOL [Concomitant]
     Indication: PAIN
  13. LIDODERM [Concomitant]
     Indication: PAIN
  14. VOLTAREN [Concomitant]
     Indication: PAIN
  15. SKELAXIN [Concomitant]
     Indication: MUSCLE RELAXANT THERAPY

REACTIONS (5)
  - Fibromyalgia [Not Recovered/Not Resolved]
  - Drug ineffective [Not Recovered/Not Resolved]
  - Psoriatic arthropathy [Not Recovered/Not Resolved]
  - Plantar fasciitis [Not Recovered/Not Resolved]
  - Exostosis [Not Recovered/Not Resolved]
